FAERS Safety Report 16362071 (Version 1)
Quarter: 2019Q3

REPORT INFORMATION
  Report Type: Spontaneous
  Country: US (occurrence: US)
  Receive Date: 20190525
  Receipt Date: 20190525
  Transmission Date: 20191004
  Serious: Yes (Disabling)
  Sender: FDA-Public Use
  Company Number: None

PATIENT

DRUGS (1)
  1. METHADONE 10MG HCL USP [Suspect]
     Active Substance: METHADONE HYDROCHLORIDE
     Indication: PAIN MANAGEMENT

REACTIONS (8)
  - Sleep disorder [None]
  - Headache [None]
  - Restless legs syndrome [None]
  - Product substitution issue [None]
  - Nausea [None]
  - Drug ineffective [None]
  - Feeling of body temperature change [None]
  - Product complaint [None]
